FAERS Safety Report 24165963 (Version 2)
Quarter: 2024Q3

REPORT INFORMATION
  Report Type: Report from Study
  Country: BE (occurrence: None)
  Receive Date: 20240802
  Receipt Date: 20240911
  Transmission Date: 20241016
  Serious: Yes (Other)
  Sender: ASTRAZENECA
  Company Number: 2022A395977

PATIENT
  Sex: Male

DRUGS (1)
  1. IMFINZI [Suspect]
     Active Substance: DURVALUMAB
     Route: 042

REACTIONS (5)
  - Muscular weakness [Unknown]
  - Atrioventricular block [Unknown]
  - Myocarditis [Unknown]
  - Hepatitis [Unknown]
  - Toxicity to various agents [Unknown]
